FAERS Safety Report 6235721-1 (Version None)
Quarter: 2009Q2

REPORT INFORMATION
  Report Type: 
  Country: None (occurrence: None)
  Receive Date: 20090619
  Receipt Date: 20070914
  Transmission Date: 20091009
  Serious: Yes (Hospitalization)
  Sender: FDA-Public Use
  Company Number: US-ASTRAZENECA-2006UW09018

PATIENT
  Age: 56 Year
  Sex: Male
  Weight: 72.6 kg

DRUGS (27)
  1. SEROQUEL [Suspect]
     Indication: PSYCHOTIC DISORDER
     Dosage: 100 MG - 200 MG
     Route: 048
     Dates: start: 19990617
  2. SEROQUEL [Suspect]
     Indication: SCHIZOPHRENIA
     Dosage: 100 MG - 200 MG
     Route: 048
     Dates: start: 19990617
  3. SEROQUEL [Suspect]
     Route: 048
     Dates: start: 20000101, end: 20040101
  4. SEROQUEL [Suspect]
     Route: 048
     Dates: start: 20000101, end: 20040101
  5. RISPERDAL [Suspect]
     Dates: start: 20010101, end: 20020801
  6. ZYPREXA [Suspect]
     Dosage: 5 MG- 15 MG
     Route: 048
     Dates: start: 19970509
  7. ZYPREXA [Suspect]
     Dates: start: 19970501, end: 20041201
  8. ATENOLOL [Concomitant]
     Route: 048
     Dates: start: 20020403
  9. ATENOLOL [Concomitant]
     Route: 048
     Dates: start: 20041222
  10. BENZTROPINE [Concomitant]
     Dosage: 0.5 MG- 1 MG
     Route: 048
     Dates: start: 19961216
  11. ENALAPRIL [Concomitant]
     Route: 048
     Dates: start: 20030324
  12. GLYBURIDE [Concomitant]
     Route: 048
     Dates: start: 19970723
  13. HALOPERIDOL [Concomitant]
     Dosage: 5 MG - 10 MG
     Route: 048
     Dates: start: 19980223
  14. HYDROCHLOROTHIAZIDE [Concomitant]
     Route: 048
     Dates: start: 19991214
  15. INSULIN LISPRO [Concomitant]
     Dosage: TWO TIMES A DAY
     Route: 030
     Dates: start: 19980513
  16. LISINOPRIL [Concomitant]
     Dosage: 10 MG - 20 MG
     Route: 048
     Dates: start: 19970516
  17. LISINOPRIL [Concomitant]
     Route: 048
     Dates: start: 20020610
  18. LITHIUM CARBONATE [Concomitant]
     Route: 048
     Dates: start: 19961216
  19. LITHIUM CARBONATE [Concomitant]
     Route: 048
     Dates: start: 20011113
  20. LORAZEPAM [Concomitant]
     Route: 048
     Dates: start: 19970723
  21. LOXAPINE [Concomitant]
     Dosage: 25 MG - 50 MG
     Route: 048
     Dates: start: 19970818
  22. METFORMIN HCL [Concomitant]
     Route: 048
     Dates: start: 19970811
  23. METFORMIN HCL [Concomitant]
     Route: 048
     Dates: start: 20000425
  24. NORTRIPTYLINE HCL [Concomitant]
     Dosage: 25 MG- 75 MG
     Dates: start: 20030325
  25. TRAZODONE HCL [Concomitant]
     Dosage: 50 MG- 100 MG
     Dates: start: 20011108
  26. VALPROIC ACID SYRUP [Concomitant]
     Route: 048
     Dates: start: 19970513
  27. NEURONTIN [Concomitant]
     Dosage: 100 MG -400 MG
     Route: 048
     Dates: start: 20001127

REACTIONS (4)
  - DEHYDRATION [None]
  - DIABETES MELLITUS [None]
  - DIABETIC NEUROPATHY [None]
  - TYPE 2 DIABETES MELLITUS [None]
